FAERS Safety Report 6772200-7 (Version None)
Quarter: 2010Q2

REPORT INFORMATION
  Report Type: 
  Country: None (occurrence: None)
  Receive Date: 20100616
  Receipt Date: 20100609
  Transmission Date: 20101027
  Serious: Yes (Hospitalization, Other)
  Sender: FDA-Public Use
  Company Number: US-GILEAD-2010-0029324

PATIENT
  Age: 71 Year
  Sex: Male

DRUGS (7)
  1. TRUVADA [Suspect]
     Indication: HIV INFECTION
     Dates: start: 20050101, end: 20100513
  2. REYATAZ [Concomitant]
     Indication: HIV INFECTION
     Dates: start: 20050101, end: 20100513
  3. NORVIR [Concomitant]
     Indication: HIV INFECTION
     Dates: start: 20050101
  4. PLAVIX [Concomitant]
  5. METOPROLOL [Concomitant]
  6. BACTRIM [Concomitant]
  7. DYAZIDE [Concomitant]

REACTIONS (1)
  - RHABDOMYOLYSIS [None]
